FAERS Safety Report 9841189 (Version 2)
Quarter: 2014Q1

REPORT INFORMATION
  Report Type: Spontaneous
  Country: US (occurrence: US)
  Receive Date: 20140124
  Receipt Date: 20140212
  Transmission Date: 20141002
  Serious: Yes (Death)
  Sender: FDA-Public Use
  Company Number: US-PFIZER INC-2014018822

PATIENT
  Age: 75 Year
  Sex: Male

DRUGS (4)
  1. SUTENT [Suspect]
     Indication: GASTROINTESTINAL STROMAL TUMOUR
     Dosage: 12.5 MG, DAILY
     Route: 048
     Dates: start: 20130712, end: 20140110
  2. DICYCLOMINE [Concomitant]
     Dosage: UNK
  3. DOXAZOSIN [Concomitant]
     Dosage: UNK
  4. FUROSEMIDE [Concomitant]
     Dosage: UNK

REACTIONS (1)
  - Death [Fatal]
